FAERS Safety Report 10880972 (Version 1)
Quarter: 2015Q1

REPORT INFORMATION
  Report Type: Spontaneous
  Country: PT (occurrence: PT)
  Receive Date: 20150303
  Receipt Date: 20150303
  Transmission Date: 20150721
  Serious: Yes (Death, Other)
  Sender: FDA-Public Use
  Company Number: PT-ROCHE-1542254

PATIENT

DRUGS (1)
  1. VEMURAFENIB [Suspect]
     Active Substance: VEMURAFENIB
     Indication: PRODUCT USED FOR UNKNOWN INDICATION
     Route: 065

REACTIONS (15)
  - Photosensitivity reaction [Unknown]
  - Diarrhoea [Unknown]
  - Pruritus [Unknown]
  - Palmoplantar keratoderma [Unknown]
  - Vomiting [Unknown]
  - Hepatotoxicity [Unknown]
  - Acute myocardial infarction [Fatal]
  - Arthralgia [Unknown]
  - Nausea [Unknown]
  - Squamous cell carcinoma of skin [Unknown]
  - Hyperkeratosis [Unknown]
  - Rash maculo-papular [Unknown]
  - Skin hyperpigmentation [Unknown]
  - Asthenia [Unknown]
  - Renal failure [Unknown]
